FAERS Safety Report 6151031-5 (Version None)
Quarter: 2009Q2

REPORT INFORMATION
  Report Type: 
  Country: None (occurrence: None)
  Receive Date: 20090410
  Receipt Date: 20090306
  Transmission Date: 20091009
  Serious: No
  Sender: FDA-Public Use
  Company Number: A0771858A

PATIENT
  Age: 59 Year
  Sex: Female

DRUGS (10)
  1. TYKERB [Suspect]
     Indication: BREAST CANCER
     Dosage: 1000MG PER DAY
     Route: 048
     Dates: start: 20090226
  2. XELODA [Concomitant]
  3. SPIRONOLACTONE [Concomitant]
     Dates: end: 20090305
  4. ALTACE [Concomitant]
     Dates: end: 20090305
  5. COREG [Concomitant]
  6. MAGNESIUM OXIDE [Concomitant]
  7. COUMADIN [Concomitant]
  8. FASLODEX [Concomitant]
  9. ARANESP [Concomitant]
  10. NEULASTA [Concomitant]

REACTIONS (2)
  - NAUSEA [None]
  - PAIN IN EXTREMITY [None]
